FAERS Safety Report 5300834-5 (Version None)
Quarter: 2007Q2

REPORT INFORMATION
  Report Type: 
  Country: None (occurrence: None)
  Receive Date: 20070411
  Receipt Date: 20070327
  Transmission Date: 20071010
  Serious: Yes (Death)
  Sender: FDA-Public Use
  Company Number: US019398

PATIENT
  Age: 39 Year
  Sex: Female
  Weight: 80.7403 kg

DRUGS (3)
  1. ACTIQ [Suspect]
     Dates: end: 20070208
  2. PROVIGIL [Suspect]
     Dates: end: 20070208
  3. CHLORAL HYDRATE [Suspect]

REACTIONS (7)
  - ALCOHOLISM [None]
  - CARDIAC DISORDER [None]
  - DRUG TOXICITY [None]
  - GASTROENTERITIS VIRAL [None]
  - GASTROINTESTINAL DISORDER [None]
  - INFLUENZA [None]
  - SUBCUTANEOUS ABSCESS [None]
